FAERS Safety Report 5268568-3 (Version None)
Quarter: 2007Q1

REPORT INFORMATION
  Report Type: 
  Country: None (occurrence: None)
  Receive Date: 20070315
  Receipt Date: 20070315
  Transmission Date: 20070707
  Serious: Yes (Hospitalization)
  Sender: FDA-Public Use
  Company Number: None

PATIENT
  Age: 28 Year
  Sex: Female
  Weight: 67 kg

DRUGS (1)
  1. CYMBALTA [Suspect]
     Indication: FIBROMYALGIA
     Dosage: 20MG  EVERY DAY  PO
     Route: 048
     Dates: start: 20070112, end: 20070216

REACTIONS (3)
  - CONDITION AGGRAVATED [None]
  - HEPATITIS ACUTE [None]
  - SYSTEMIC LUPUS ERYTHEMATOSUS [None]
